FAERS Safety Report 9617195 (Version 2)
Quarter: 2013Q4

REPORT INFORMATION
  Report Type: Spontaneous
  Country: NL (occurrence: NL)
  Receive Date: 20131011
  Receipt Date: 20131016
  Transmission Date: 20140711
  Serious: Yes (Death)
  Sender: FDA-Public Use
  Company Number: NL-ACTELION-A-CH2013-89646

PATIENT
  Age: 87 Year
  Sex: Female
  Weight: 47 kg

DRUGS (1)
  1. TRACLEER [Suspect]
     Indication: PULMONARY ARTERIAL HYPERTENSION
     Dosage: 125 MG, BID
     Route: 048
     Dates: start: 20081002, end: 20131001

REACTIONS (1)
  - Death [Fatal]
